FAERS Safety Report 15486168 (Version 1)
Quarter: 2018Q4

REPORT INFORMATION
  Report Type: Other
  Country: CN (occurrence: CN)
  Receive Date: 20181011
  Receipt Date: 20181011
  Transmission Date: 20190205
  Serious: Yes (Hospitalization)
  Sender: FDA-Public Use
  Company Number: CN-MSN LABORATORIES PRIVATE LIMITED-2055915

PATIENT
  Age: 70 Year
  Sex: Female

DRUGS (9)
  1. LINEZOLID. [Suspect]
     Active Substance: LINEZOLID
     Route: 065
     Dates: start: 20170831
  2. MOXIFLOXACIN HYDROCHLORIDE. [Suspect]
     Active Substance: MOXIFLOXACIN HYDROCHLORIDE
     Indication: TUBERCULOSIS
     Route: 065
     Dates: start: 20170127
  3. PYRAZINAMIDE. [Concomitant]
     Active Substance: PYRAZINAMIDE
     Route: 065
  4. ISONIAZID. [Concomitant]
     Active Substance: ISONIAZID
     Route: 065
  5. RIFAMPICIN [Concomitant]
     Active Substance: RIFAMPIN
     Route: 065
  6. PROTIONAMIDE [Concomitant]
     Active Substance: PROTIONAMIDE
     Route: 065
     Dates: start: 20180127
  7. CYCLOSERINE. [Concomitant]
     Active Substance: CYCLOSERINE
     Route: 065
     Dates: start: 20180127
  8. CLOFAZIMINE [Concomitant]
     Active Substance: CLOFAZIMINE
     Route: 065
  9. ETHAMBUTOL [Concomitant]
     Active Substance: ETHAMBUTOL HYDROCHLORIDE
     Route: 065

REACTIONS (2)
  - Thrombocytopenia [Recovering/Resolving]
  - Product use in unapproved indication [Unknown]
